FAERS Safety Report 22105178 (Version 1)
Quarter: 2023Q1

REPORT INFORMATION
  Report Type: Other
  Country: US (occurrence: None)
  Receive Date: 20230316
  Receipt Date: 20230316
  Transmission Date: 20230418
  Serious: No
  Sender: FDA-Public Use
  Company Number: US-ROCHE-3019889

PATIENT
  Age: 61 Year
  Sex: Male

DRUGS (1)
  1. OCREVUS [Suspect]
     Active Substance: OCRELIZUMAB
     Indication: Primary progressive multiple sclerosis
     Dosage: FOR MAINTENANCE; DATE OF TREATMENTS: 18/MAY/2019, 06/NOV/2019, 06/MAY/2020, 11/MAY/2021, 10/NOV/2021
     Route: 065

REACTIONS (2)
  - Off label use [Unknown]
  - COVID-19 [Recovering/Resolving]
